FAERS Safety Report 10425896 (Version 1)
Quarter: 2014Q3

REPORT INFORMATION
  Report Type: Spontaneous
  Country: US (occurrence: US)
  Receive Date: 20140903
  Receipt Date: 20140903
  Transmission Date: 20150326
  Serious: Yes (Disabling, Other)
  Sender: FDA-Public Use
  Company Number: US-009507513-1408USA014559

PATIENT
  Age: 49 Year
  Sex: Female
  Weight: 66.32 kg

DRUGS (11)
  1. BIAXIN [Suspect]
     Active Substance: CLARITHROMYCIN
     Indication: SINUSITIS
     Dosage: 250 MG, BID
     Route: 048
  2. XOPENEX [Suspect]
     Active Substance: LEVALBUTEROL HYDROCHLORIDE
  3. BENADRYL [Suspect]
     Active Substance: DIPHENHYDRAMINE HYDROCHLORIDE
  4. ADVAIR HFA [Suspect]
     Active Substance: FLUTICASONE PROPIONATE\SALMETEROL XINAFOATE
     Indication: ASTHMA
     Dosage: 1 PUFF TWICE PER DAY
     Route: 055
     Dates: start: 201205
  5. SODIUM CHLORIDE. [Suspect]
     Active Substance: SODIUM CHLORIDE
  6. LEVOXYL [Concomitant]
     Active Substance: LEVOTHYROXINE SODIUM
  7. PROVENTIL [Suspect]
     Active Substance: ALBUTEROL
     Indication: ASTHMA
     Dosage: 2 PUFFS
     Route: 055
     Dates: start: 20140222
  8. ACIPHEX [Concomitant]
     Active Substance: RABEPRAZOLE SODIUM
  9. COLCHICINE. [Concomitant]
     Active Substance: COLCHICINE
  10. ADVAIR HFA [Suspect]
     Active Substance: FLUTICASONE PROPIONATE\SALMETEROL XINAFOATE
     Dosage: USE IN MORNING, DIDN^T USE IN THE EVENING
     Route: 055
     Dates: start: 20140222, end: 20140223
  11. ADVAIR HFA [Suspect]
     Active Substance: FLUTICASONE PROPIONATE\SALMETEROL XINAFOATE
     Dosage: 1 PUFF TWICE PER DAY
     Route: 055
     Dates: start: 20140224, end: 20140224

REACTIONS (96)
  - Speech disorder [Recovering/Resolving]
  - Dysphagia [Recovered/Resolved]
  - Eyelid oedema [Recovered/Resolved]
  - Paraesthesia [Recovered/Resolved]
  - Dyspnoea [Recovering/Resolving]
  - Immune system disorder [Unknown]
  - Irritability [Unknown]
  - Upper respiratory tract infection [Unknown]
  - Hypoaesthesia [Recovering/Resolving]
  - Burning sensation [Recovering/Resolving]
  - Heart rate increased [Recovering/Resolving]
  - Paraesthesia [Recovering/Resolving]
  - Hypoaesthesia [Unknown]
  - Neck pain [Unknown]
  - Blood pressure increased [Unknown]
  - Anaphylactic reaction [Recovering/Resolving]
  - Heart rate increased [Recovered/Resolved]
  - Headache [Recovered/Resolved]
  - Pharyngeal oedema [Recovered/Resolved]
  - Oropharyngeal pain [Unknown]
  - Throat tightness [Recovered/Resolved]
  - Headache [Recovering/Resolving]
  - Paraesthesia [Unknown]
  - Neoplasm malignant [Unknown]
  - Asthma [Not Recovered/Not Resolved]
  - Lip swelling [Recovered/Resolved]
  - Dizziness [Recovered/Resolved]
  - Hypoaesthesia eye [Recovering/Resolving]
  - Erythema [Recovering/Resolving]
  - Thinking abnormal [Recovering/Resolving]
  - Bronchitis [Unknown]
  - Cyst [Unknown]
  - Visual acuity reduced [Unknown]
  - Confusional state [Recovered/Resolved]
  - Urticaria [Recovering/Resolving]
  - Erythema [Recovering/Resolving]
  - Fall [Recovering/Resolving]
  - Tremor [Recovering/Resolving]
  - Feeling abnormal [Recovering/Resolving]
  - Swollen tongue [Recovered/Resolved]
  - Nausea [Recovered/Resolved]
  - Dyspnoea [Recovered/Resolved]
  - Dizziness [Recovering/Resolving]
  - Disorientation [Recovering/Resolving]
  - Speech disorder [Recovering/Resolving]
  - Candida infection [Unknown]
  - Loss of libido [Unknown]
  - Eyelid oedema [Recovering/Resolving]
  - Lip swelling [Recovering/Resolving]
  - Nausea [Recovering/Resolving]
  - Dyspnoea [Recovering/Resolving]
  - Pruritus [Recovering/Resolving]
  - Myocardial infarction [Unknown]
  - Pain [Unknown]
  - Hypoaesthesia [Recovered/Resolved]
  - Urticaria [Recovered/Resolved]
  - Swelling face [Recovered/Resolved]
  - Pruritus [Recovered/Resolved]
  - Sinusitis [Unknown]
  - Infection [Unknown]
  - Drug ineffective [Unknown]
  - Paraesthesia [Recovering/Resolving]
  - Swollen tongue [Recovering/Resolving]
  - Panic reaction [Recovering/Resolving]
  - Apparent death [Unknown]
  - Choking [Unknown]
  - Burning sensation [Recovered/Resolved]
  - Dyspnoea [Recovered/Resolved]
  - Hypoaesthesia [Recovering/Resolving]
  - Tremor [Recovering/Resolving]
  - Feeling abnormal [Recovering/Resolving]
  - Rash [Recovering/Resolving]
  - Disorientation [Recovering/Resolving]
  - Alopecia [Unknown]
  - Weight decreased [Unknown]
  - Fatigue [Unknown]
  - Poor quality sleep [Unknown]
  - Paraesthesia [Recovering/Resolving]
  - Throat tightness [Recovering/Resolving]
  - Paraesthesia oral [Recovering/Resolving]
  - Disturbance in attention [Recovering/Resolving]
  - Rash [Recovered/Resolved]
  - Erythema [Recovered/Resolved]
  - Swelling face [Recovering/Resolving]
  - Hypoaesthesia [Recovering/Resolving]
  - Dysphonia [Not Recovered/Not Resolved]
  - Vocal cord disorder [Unknown]
  - Speech disorder [Unknown]
  - Dysphagia [Recovering/Resolving]
  - Pharyngeal oedema [Recovering/Resolving]
  - Dizziness [Recovering/Resolving]
  - Confusional state [Recovering/Resolving]
  - Hypoaesthesia oral [Recovering/Resolving]
  - Tremor [Recovering/Resolving]
  - Abasia [Unknown]
  - Drug administration error [Unknown]

NARRATIVE: CASE EVENT DATE: 20130223
